FAERS Safety Report 9342310 (Version 2)
Quarter: 2013Q3

REPORT INFORMATION
  Report Type: Report from Study
  Country: CA (occurrence: CA)
  Receive Date: 20130611
  Receipt Date: 20130806
  Transmission Date: 20140515
  Serious: Yes (Other)
  Sender: FDA-Public Use
  Company Number: PHHY2013CA056631

PATIENT
  Age: 37 Year
  Sex: Female

DRUGS (6)
  1. GILENYA [Suspect]
     Indication: RELAPSING-REMITTING MULTIPLE SCLEROSIS
     Dosage: 0.5 MG, QD
     Route: 048
     Dates: start: 20130530
  2. VITAMIN D [Concomitant]
     Dosage: 1000 MG, QD
  3. PANTOPRAZOLE [Concomitant]
     Dosage: 40 MG, QD
  4. TOVIAZ [Concomitant]
     Dosage: 8 MG, QD
  5. PREGABALIN [Concomitant]
     Dosage: 300 MG, QD
     Route: 048
  6. BACLOFEN [Concomitant]
     Dosage: 10 MG, QD

REACTIONS (6)
  - Blood pressure decreased [Recovering/Resolving]
  - Burning sensation [Unknown]
  - Hypoaesthesia [Unknown]
  - Pain in extremity [Unknown]
  - Dizziness [Recovering/Resolving]
  - Headache [Not Recovered/Not Resolved]
